FAERS Safety Report 6591639-6 (Version None)
Quarter: 2010Q1

REPORT INFORMATION
  Report Type: 
  Country: None (occurrence: None)
  Receive Date: 20100221
  Receipt Date: 20090810
  Transmission Date: 20100710
  Serious: No
  Sender: FDA-Public Use
  Company Number: US-ALLERGAN-0911032US

PATIENT
  Sex: Female

DRUGS (2)
  1. BOTOX COSMETIC [Suspect]
     Indication: SKIN WRINKLING
     Dosage: UNK
     Route: 030
  2. IOPIDINE [Suspect]
     Indication: EYELID PTOSIS
     Dosage: UNK

REACTIONS (2)
  - EYELID PTOSIS [None]
  - INJECTION SITE ANAESTHESIA [None]
